FAERS Safety Report 24772827 (Version 1)
Quarter: 2024Q4

REPORT INFORMATION
  Report Type: Spontaneous
  Country: GB (occurrence: GB)
  Receive Date: 20241225
  Receipt Date: 20241225
  Transmission Date: 20250115
  Serious: Yes (Other)
  Sender: ABBVIE
  Company Number: None

PATIENT
  Sex: Female

DRUGS (1)
  1. BOTOX [Suspect]
     Active Substance: ONABOTULINUMTOXINA
     Indication: Migraine
     Dosage: TIME INTERVAL: AS NECESSARY
     Route: 065
     Dates: start: 20241211, end: 20241211

REACTIONS (5)
  - Periorbital swelling [Not Recovered/Not Resolved]
  - Eyelid ptosis [Unknown]
  - Visual impairment [Unknown]
  - Nausea [Unknown]
  - Disorientation [Unknown]

NARRATIVE: CASE EVENT DATE: 20241201
